FAERS Safety Report 15596250 (Version 1)
Quarter: 2018Q4

REPORT INFORMATION
  Report Type: Report from Study
  Country: None (occurrence: US)
  Receive Date: 20181108
  Receipt Date: 20181108
  Transmission Date: 20190205
  Serious: Yes (Hospitalization, Other)
  Sender: FDA-Public Use
  Company Number: US-ABBVIE-18K-163-2507607-00

PATIENT
  Sex: Male

DRUGS (2)
  1. HUMIRA [Suspect]
     Active Substance: ADALIMUMAB
     Indication: CROHN^S DISEASE
     Route: 058
  2. REMICADE [Suspect]
     Active Substance: INFLIXIMAB
     Indication: PRODUCT USED FOR UNKNOWN INDICATION
     Route: 065

REACTIONS (7)
  - Precancerous cells present [Unknown]
  - Upper respiratory tract infection [Recovered/Resolved]
  - Malaise [Unknown]
  - Infection susceptibility increased [Unknown]
  - Large intestine polyp [Recovered/Resolved]
  - Sinusitis [Recovered/Resolved]
  - Gastrointestinal polyp haemorrhage [Unknown]
